FAERS Safety Report 8580357 (Version 2)
Quarter: 2013Q4

REPORT INFORMATION
  Report Type: Spontaneous
  Country: GB (occurrence: GB)
  Receive Date: 20120525
  Receipt Date: 20131008
  Transmission Date: 20140711
  Serious: Yes (Death, Life-Threatening, Other)
  Sender: FDA-Public Use
  Company Number: GB-MYLANLABS-2012S1009870

PATIENT
  Age: 70 Year
  Sex: Female
  Weight: 80 kg

DRUGS (8)
  1. CIPROFLOXACIN [Suspect]
     Indication: INFECTION
     Route: 048
     Dates: start: 20120329, end: 20120405
  2. PIPERACILLIN AND TAZOBACTAM [Suspect]
     Indication: INFECTION
     Route: 042
     Dates: start: 20120405
  3. METHOTREXATE [Suspect]
     Indication: PSORIATIC ARTHROPATHY
     Route: 048
     Dates: end: 20120407
  4. ALLOPURINOL [Concomitant]
     Indication: PRODUCT USED FOR UNKNOWN INDICATION
  5. CIPROFLOXACIN [Concomitant]
     Indication: INFECTION
  6. GENTAMICIN [Concomitant]
     Indication: INFECTION
     Dates: end: 20120329
  7. RIFAMPICIN [Concomitant]
     Indication: INFECTION
  8. TEICOPLANIN [Concomitant]
     Indication: INFECTION
     Dates: end: 20120329

REACTIONS (6)
  - Stevens-Johnson syndrome [Fatal]
  - Renal failure acute [Unknown]
  - Liver function test abnormal [Unknown]
  - Pancytopenia [Not Recovered/Not Resolved]
  - Sepsis [Unknown]
  - Potentiating drug interaction [Not Recovered/Not Resolved]
